FAERS Safety Report 23851751 (Version 1)
Quarter: 2024Q2

REPORT INFORMATION
  Report Type: Spontaneous
  Country: HU (occurrence: HU)
  Receive Date: 20240514
  Receipt Date: 20240514
  Transmission Date: 20240716
  Serious: Yes (Death)
  Sender: FDA-Public Use
  Company Number: HU-JNJFOC-20240523322

PATIENT
  Age: 65 Year
  Sex: Male

DRUGS (1)
  1. IMBRUVICA [Suspect]
     Active Substance: IBRUTINIB
     Indication: Product used for unknown indication
     Route: 048

REACTIONS (2)
  - Pulmonary fibrosis [Fatal]
  - Arrhythmia [Fatal]
